FAERS Safety Report 5458724-3 (Version None)
Quarter: 2007Q3

REPORT INFORMATION
  Report Type: 
  Country: None (occurrence: None)
  Receive Date: 20070919
  Receipt Date: 20070426
  Transmission Date: 20080115
  Serious: No
  Sender: FDA-Public Use
  Company Number: US-ASTRAZENECA-2007UW08106

PATIENT
  Age: 15 Year
  Sex: Female
  Weight: 53.2 kg

DRUGS (3)
  1. SEROQUEL [Suspect]
     Indication: BIPOLAR DISORDER
     Route: 048
  2. VISTARIL [Concomitant]
  3. EFFEXOR XR [Concomitant]

REACTIONS (2)
  - BIPOLAR DISORDER [None]
  - DRUG INTERACTION [None]
